FAERS Safety Report 23790603 (Version 1)
Quarter: 2024Q2

REPORT INFORMATION
  Report Type: Spontaneous
  Country: US (occurrence: US)
  Receive Date: 20240427
  Receipt Date: 20240427
  Transmission Date: 20240715
  Serious: Yes (Other)
  Sender: FDA-Public Use
  Company Number: US-EPICPHARMA-US-2024EPCLIT00394

PATIENT
  Age: 80 Year
  Sex: Female

DRUGS (1)
  1. TRANEXAMIC ACID [Suspect]
     Active Substance: TRANEXAMIC ACID
     Indication: Gastrointestinal haemorrhage
     Route: 065

REACTIONS (3)
  - Acute myocardial infarction [Unknown]
  - Coronary artery thrombosis [Unknown]
  - Product use in unapproved indication [Unknown]
